FAERS Safety Report 8799584 (Version 1)
Quarter: 2012Q4

REPORT INFORMATION
  Report Type: 
  Country: US (occurrence: US)
  Receive Date: 20120919
  Receipt Date: 20120919
  Transmission Date: 20130627
  Serious: No
  Sender: FDA-Public Use
  Company Number: US-009507513-1208USA011980

PATIENT

DRUGS (5)
  1. VICTRELIS [Suspect]
     Dosage: 800 mg, tid
     Route: 048
  2. PEGASYS [Concomitant]
     Dosage: 180 Microgram, UNK
  3. RIBAPAK [Concomitant]
     Dosage: 1200
  4. LEXAPRO [Concomitant]
  5. TYLENOL [Concomitant]

REACTIONS (1)
  - Dysgeusia [Unknown]
